FAERS Safety Report 5376090-9 (Version None)
Quarter: 2007Q3

REPORT INFORMATION
  Report Type: 
  Country: None (occurrence: None)
  Receive Date: 20070702
  Receipt Date: 20070628
  Transmission Date: 20080115
  Serious: Yes (Disabling)
  Sender: FDA-Public Use
  Company Number: A0650610A

PATIENT
  Age: 50 Year
  Sex: Male

DRUGS (3)
  1. LAMICTAL [Suspect]
     Indication: BIPOLAR DISORDER
     Dosage: 100MG PER DAY
     Route: 048
     Dates: start: 20070201
  2. LITHIUM [Suspect]
     Indication: BIPOLAR DISORDER
     Dosage: 450MG TWICE PER DAY
     Route: 048
     Dates: start: 19970101
  3. LITHIUM [Concomitant]

REACTIONS (4)
  - APTYALISM [None]
  - DRY MOUTH [None]
  - GLOSSITIS [None]
  - TONGUE PARALYSIS [None]
